FAERS Safety Report 4999636-9 (Version None)
Quarter: 2006Q2

REPORT INFORMATION
  Report Type: 
  Country: None (occurrence: None)
  Receive Date: 20060509
  Receipt Date: 20060509
  Transmission Date: 20061013
  Serious: Yes (Other)
  Sender: FDA-Public Use
  Company Number: None

PATIENT
  Sex: Female

DRUGS (1)
  1. CYTOXAN [Suspect]
     Indication: BONE MARROW TRANSPLANT
     Dosage: 3540 MG DAY -3 AND -2 BEFORE IV
     Route: 042
     Dates: start: 20050706, end: 20050712

REACTIONS (5)
  - ABDOMINAL DISCOMFORT [None]
  - BURNING SENSATION [None]
  - CATHETER SITE PAIN [None]
  - ELECTROCARDIOGRAM T WAVE AMPLITUDE DECREASED [None]
  - NAUSEA [None]
